FAERS Safety Report 4837730-3 (Version None)
Quarter: 2005Q4

REPORT INFORMATION
  Report Type: 
  Country: None (occurrence: None)
  Receive Date: 20051128
  Receipt Date: 20051004
  Transmission Date: 20060501
  Serious: Yes (Hospitalization, Disabling)
  Sender: FDA-Public Use
  Company Number: US-MERCK-0510USA02387

PATIENT
  Age: 40 Year
  Sex: Female
  Weight: 67 kg

DRUGS (26)
  1. VIOXX [Suspect]
     Indication: BACK DISORDER
     Route: 048
     Dates: start: 20020101, end: 20040101
  2. VIOXX [Suspect]
     Route: 048
     Dates: start: 20020101, end: 20040101
  3. VIOXX [Suspect]
     Route: 048
     Dates: start: 20020101, end: 20040101
  4. VIOXX [Suspect]
     Route: 048
     Dates: start: 20020101, end: 20040101
  5. POLYETHYLENE GLYCOL [Concomitant]
     Route: 065
  6. ALBUTEROL [Concomitant]
     Route: 065
  7. HYDROCODONE BITARTRATE [Concomitant]
     Route: 065
  8. PRAVACHOL [Concomitant]
     Route: 065
  9. CALCIUM (UNSPECIFIED) [Concomitant]
     Route: 065
  10. CYTOMEL [Concomitant]
     Route: 065
  11. ASPIRIN [Concomitant]
     Route: 065
  12. [THERAPY UNSPECIFIED] [Concomitant]
     Route: 065
  13. SYNTHROID [Concomitant]
     Route: 065
  14. SPIRIVA [Concomitant]
     Route: 065
  15. [THERAPY UNSPECIFIED] [Concomitant]
     Route: 065
  16. NAPROXEN [Concomitant]
     Route: 065
  17. ATROVENT [Concomitant]
     Route: 065
  18. SINGULAIR [Concomitant]
     Route: 065
  19. PLAVIX [Concomitant]
     Route: 065
  20. TOPROL-XL [Concomitant]
     Route: 065
  21. ACTONEL [Concomitant]
     Route: 065
  22. HYDRODIURIL [Concomitant]
     Route: 048
  23. ZELNORM [Concomitant]
     Route: 065
  24. CLIMARA [Concomitant]
     Route: 065
  25. BACLOFEN [Concomitant]
     Route: 065
  26. ZITHROMAX [Concomitant]
     Route: 065

REACTIONS (4)
  - CARDIAC DISORDER [None]
  - CORONARY ARTERY OCCLUSION [None]
  - DEPRESSION [None]
  - MYOCARDIAL INFARCTION [None]
